FAERS Safety Report 20718349 (Version 3)
Quarter: 2022Q3

REPORT INFORMATION
  Report Type: Spontaneous
  Country: US (occurrence: US)
  Receive Date: 20220418
  Receipt Date: 20220715
  Transmission Date: 20221026
  Serious: Yes (Other)
  Sender: FDA-Public Use
  Company Number: US-APOTEX-2022AP005965

PATIENT
  Sex: Female

DRUGS (3)
  1. LEVETIRACETAM [Suspect]
     Active Substance: LEVETIRACETAM
     Indication: Seizure
     Dosage: 2 DOSAGE FORM, QD
     Route: 048
  2. LEVETIRACETAM [Suspect]
     Active Substance: LEVETIRACETAM
     Dosage: 2 DOSAGE FORM, BID
     Route: 048
  3. LEVETIRACETAM [Suspect]
     Active Substance: LEVETIRACETAM
     Dosage: 1 DOSAGE FORM, QD
     Route: 048

REACTIONS (10)
  - Hallucination [Recovered/Resolved]
  - Scratch [Recovering/Resolving]
  - Dry mouth [Recovering/Resolving]
  - Intentional product use issue [Unknown]
  - Muscle twitching [Not Recovered/Not Resolved]
  - Memory impairment [Unknown]
  - Insomnia [Recovered/Resolved]
  - Pruritus [Recovering/Resolving]
  - Headache [Unknown]
  - Dizziness [Not Recovered/Not Resolved]
